FAERS Safety Report 11848692 (Version 1)
Quarter: 2015Q4

REPORT INFORMATION
  Report Type: Spontaneous
  Country: PT (occurrence: PT)
  Receive Date: 20151218
  Receipt Date: 20151218
  Transmission Date: 20160305
  Serious: Yes (Death, Life-Threatening, Hospitalization)
  Sender: FDA-Public Use
  Company Number: PT-ACCORD-036367

PATIENT
  Age: 65 Year
  Sex: Female

DRUGS (4)
  1. TOPOTECAN/TOPOTECAN HYDROCHLORIDE [Suspect]
     Active Substance: TOPOTECAN\TOPOTECAN HYDROCHLORIDE
     Indication: OVARIAN CANCER
     Dates: start: 201202
  2. DOXORUBICIN [Suspect]
     Active Substance: DOXORUBICIN
     Indication: OVARIAN CANCER
     Dosage: SHE ALSO RECEIVED NON-PEGYLATED LIPOSOMAL DOXORUBICIN
  3. GEMCITABINE/GEMCITABINE HYDROCHLORIDE [Suspect]
     Active Substance: GEMCITABINE\GEMCITABINE HYDROCHLORIDE
     Indication: OVARIAN CANCER
  4. PACLITAXEL/PACLITAXEL LIPOSOME [Suspect]
     Active Substance: PACLITAXEL
     Indication: OVARIAN CANCER

REACTIONS (4)
  - Gastrointestinal toxicity [Unknown]
  - Toxicity to various agents [Unknown]
  - Haematotoxicity [Fatal]
  - Palmar-plantar erythrodysaesthesia syndrome [Unknown]
